FAERS Safety Report 19213714 (Version 5)
Quarter: 2021Q4

REPORT INFORMATION
  Report Type: Report from Study
  Country: CZ (occurrence: CZ)
  Receive Date: 20210504
  Receipt Date: 20211229
  Transmission Date: 20220303
  Serious: Yes (Hospitalization)
  Sender: FDA-Public Use
  Company Number: CZ-ABBVIE-21P-217-3863849-00

PATIENT
  Age: 67 Year
  Sex: Male

DRUGS (17)
  1. PLACEBO [Suspect]
     Active Substance: UNSPECIFIED INGREDIENT
     Indication: Rheumatoid arthritis
     Route: 065
     Dates: start: 20160913, end: 20170313
  2. UPADACITINIB [Suspect]
     Active Substance: UPADACITINIB
     Indication: Rheumatoid arthritis
     Route: 048
     Dates: start: 20170314, end: 20180821
  3. UPADACITINIB [Suspect]
     Active Substance: UPADACITINIB
     Indication: Rheumatoid arthritis
     Route: 048
     Dates: start: 20180822, end: 20210222
  4. METHYLPREDNISOLONE [Concomitant]
     Active Substance: METHYLPREDNISOLONE
     Indication: Rheumatoid arthritis
     Route: 048
     Dates: start: 201603
  5. POTASSIUM CHLORIDE [Concomitant]
     Active Substance: POTASSIUM CHLORIDE
     Indication: Prophylaxis
     Route: 048
     Dates: start: 20131105
  6. CALTRATE [Concomitant]
     Active Substance: CALCIUM CARBONATE
     Indication: Osteoporosis prophylaxis
     Route: 048
     Dates: start: 20131105
  7. OMEPRAZOLE [Concomitant]
     Active Substance: OMEPRAZOLE
     Indication: Prophylaxis
     Route: 048
     Dates: start: 20131105
  8. ALLOPURINOL [Concomitant]
     Active Substance: ALLOPURINOL
     Indication: Hyperuricaemia
     Route: 048
     Dates: start: 20140128
  9. DICLOFENAC SODIUM [Concomitant]
     Active Substance: DICLOFENAC SODIUM
     Indication: Rheumatoid arthritis
     Route: 048
     Dates: start: 20120702
  10. METHOTREXATE [Concomitant]
     Active Substance: METHOTREXATE
     Indication: Rheumatoid arthritis
     Route: 048
     Dates: start: 201409
  11. FOLIC ACID [Concomitant]
     Active Substance: FOLIC ACID
     Indication: Vitamin supplementation
     Route: 048
     Dates: start: 20120426
  12. INDOMETHACIN [Concomitant]
     Active Substance: INDOMETHACIN
     Indication: Rheumatoid arthritis
     Route: 054
     Dates: start: 20140607
  13. FUCIDIN [Concomitant]
     Active Substance: FUSIDATE SODIUM
     Indication: Dermatitis
     Dosage: 1 APPLICATION
     Route: 061
     Dates: start: 20200704
  14. SOOLANTRA [Concomitant]
     Active Substance: IVERMECTIN
     Indication: Dermatitis
     Dosage: 1 APPLICATION
     Route: 061
     Dates: start: 20200704
  15. BROMAZEPAM [Concomitant]
     Active Substance: BROMAZEPAM
     Indication: Depression
     Route: 048
     Dates: start: 20200918
  16. HEMINERVIN [Concomitant]
     Indication: Depression
     Route: 048
     Dates: start: 20200918
  17. HALOPERIDOL [Concomitant]
     Active Substance: HALOPERIDOL
     Indication: Depression
     Route: 048
     Dates: start: 20200918

REACTIONS (1)
  - Herpetic radiculopathy [Not Recovered/Not Resolved]

NARRATIVE: CASE EVENT DATE: 20210213
